FAERS Safety Report 17146880 (Version 2)
Quarter: 2022Q3

REPORT INFORMATION
  Report Type: Report from Study
  Country: DE (occurrence: DE)
  Receive Date: 20191212
  Receipt Date: 20220923
  Transmission Date: 20221027
  Serious: Yes (Other)
  Sender: FDA-Public Use
  Company Number: DE-NOVARTISPH-PHHY2019DE050070

PATIENT
  Sex: Female

DRUGS (10)
  1. GILENYA [Suspect]
     Active Substance: FINGOLIMOD HYDROCHLORIDE
     Indication: Multiple sclerosis
     Dosage: 0.5 MG, UNK
     Route: 048
     Dates: start: 20170131
  2. DIMETHINDENE MALEATE [Concomitant]
     Active Substance: DIMETHINDENE MALEATE
     Indication: Dermatitis atopic
     Dosage: UNK
     Route: 065
  3. CITALOPRAM [Concomitant]
     Active Substance: CITALOPRAM HYDROBROMIDE
     Indication: Depression
     Dosage: 20 MG, QD
     Route: 065
     Dates: start: 20090101
  4. CHOLECALCIFEROL [Concomitant]
     Active Substance: CHOLECALCIFEROL
     Indication: Vitamin D deficiency
     Dosage: 20000 IU, EVERY OTHER WEEK, UNK
     Route: 065
     Dates: start: 20130916
  5. FEXOFENADINE [Concomitant]
     Active Substance: FEXOFENADINE HYDROCHLORIDE
     Indication: Dermatitis atopic
     Dosage: 180 MG, BID
     Route: 065
     Dates: start: 20130607
  6. CETIRIZINE [Concomitant]
     Active Substance: CETIRIZINE HYDROCHLORIDE
     Indication: Dermatitis atopic
     Dosage: UNK UNK, BID
     Route: 065
     Dates: start: 20150914
  7. LORATADINE [Concomitant]
     Active Substance: LORATADINE
     Indication: Dermatitis atopic
     Dosage: 10 MG, BID
     Route: 065
     Dates: start: 20150914
  8. ACETAMINOPHEN [Concomitant]
     Active Substance: ACETAMINOPHEN
     Indication: Headache
     Dosage: 500 MG, PRN
     Route: 065
  9. MOMETASONE FUROATE [Concomitant]
     Active Substance: MOMETASONE FUROATE
     Indication: Dermatitis atopic
     Dosage: 2 DF, QD (AFTERWARDS 5 DAYS 1 X DAILY)
     Route: 065
     Dates: start: 20190304, end: 20190313
  10. PIMECROLIMUS [Concomitant]
     Active Substance: PIMECROLIMUS
     Indication: Dermatitis atopic
     Dosage: UNK UNK, BID
     Route: 065
     Dates: start: 20191121

REACTIONS (10)
  - Dermatitis atopic [Unknown]
  - Neurodermatitis [Unknown]
  - Back pain [Unknown]
  - Pyrexia [Unknown]
  - Pruritus [Unknown]
  - Gamma-glutamyltransferase increased [Not Recovered/Not Resolved]
  - Aspartate aminotransferase increased [Recovered/Resolved]
  - Concomitant disease aggravated [Unknown]
  - Constipation [Unknown]
  - Micturition urgency [Unknown]

NARRATIVE: CASE EVENT DATE: 20180504
